FAERS Safety Report 9697484 (Version 1)
Quarter: 2013Q4

REPORT INFORMATION
  Report Type: Spontaneous
  Country: GB (occurrence: GB)
  Receive Date: 20131120
  Receipt Date: 20131120
  Transmission Date: 20140711
  Serious: Yes (Disabling)
  Sender: FDA-Public Use
  Company Number: CHNY2013GB002574

PATIENT
  Sex: 0

DRUGS (10)
  1. DICLOFENAC DIETHYLAMMONIUM SALT [Suspect]
     Route: 061
     Dates: start: 20131104, end: 20131105
  2. CO-CODAMOL [Concomitant]
  3. MELOXICAM [Concomitant]
  4. HYPROMELLOSE [Concomitant]
  5. SALICYLIC ACID W/COAL TAR/SULFUR [Concomitant]
  6. TRIMOVATE [Concomitant]
  7. NEUTROGENA T/GEL [Concomitant]
  8. BETACAP [Concomitant]
  9. RAMIPRIL [Concomitant]
  10. OMEPRAZOLE [Concomitant]

REACTIONS (2)
  - Chest discomfort [Recovered/Resolved]
  - Wheezing [Recovered/Resolved]
